FAERS Safety Report 4970653-8 (Version None)
Quarter: 2006Q1

REPORT INFORMATION
  Report Type: 
  Country: None (occurrence: None)
  Receive Date: 20060208
  Receipt Date: 20050322
  Transmission Date: 20060701
  Serious: Yes (Other)
  Sender: FDA-Public Use
  Company Number: PHEH2005US03489

PATIENT
  Age: 38 Year
  Sex: Female

DRUGS (1)
  1. ELIDEL [Suspect]
     Indication: ECZEMA
     Dosage: TOPICAL
     Route: 061
     Dates: start: 20041101, end: 20041201

REACTIONS (12)
  - EAR CANAL ERYTHEMA [None]
  - EAR INFECTION [None]
  - EAR PAIN [None]
  - FURUNCLE [None]
  - GASTROENTERITIS VIRAL [None]
  - NASOPHARYNGITIS [None]
  - OTORRHOEA [None]
  - PAIN [None]
  - PYREXIA [None]
  - SCAR [None]
  - TREMOR [None]
  - VOMITING [None]
